FAERS Safety Report 5303246-3 (Version None)
Quarter: 2007Q2

REPORT INFORMATION
  Report Type: 
  Country: None (occurrence: None)
  Receive Date: 20070420
  Receipt Date: 20070409
  Transmission Date: 20071010
  Serious: Yes (Hospitalization)
  Sender: FDA-Public Use
  Company Number: HQWYE944116MAR07

PATIENT
  Sex: Female
  Weight: 53 kg

DRUGS (10)
  1. ENBREL [Suspect]
     Indication: RHEUMATOID ARTHRITIS
     Route: 058
     Dates: start: 20060828, end: 20070307
  2. ISONIAZID [Suspect]
     Indication: ANTIBIOTIC PROPHYLAXIS
     Route: 048
     Dates: start: 20060802
  3. ISONIAZID [Suspect]
     Route: 048
     Dates: start: 20061011, end: 20070307
  4. PREDONINE [Concomitant]
     Indication: RHEUMATOID ARTHRITIS
     Dosage: UNSPECIFIED
     Route: 048
     Dates: start: 20000831
  5. SELTOUCH [Concomitant]
     Indication: RHEUMATOID ARTHRITIS
     Dosage: 1DF/DAY TAP
     Dates: start: 20000817, end: 20070308
  6. CALCIUM LACTATE [Concomitant]
     Indication: OSTEOPOROSIS
     Dosage: UNSPECIFIED
     Route: 048
     Dates: start: 20020927
  7. PARIET [Concomitant]
     Indication: GASTRIC ULCER
     Route: 048
     Dates: start: 20050929
  8. CYANOCOBALAMIN [Concomitant]
     Indication: HYPOAESTHESIA
     Route: 048
     Dates: start: 20030630, end: 20070308
  9. RHEUMATREX [Concomitant]
     Indication: RHEUMATOID ARTHRITIS
     Dosage: 2 MG UNSPECIFIED FREQUENCY
     Route: 048
     Dates: start: 20060306, end: 20070122
  10. ROCALTROL [Concomitant]
     Indication: OSTEOPOROSIS
     Route: 048
     Dates: start: 20010326

REACTIONS (3)
  - PLATELET COUNT DECREASED [None]
  - TOXIC SKIN ERUPTION [None]
  - WHITE BLOOD CELL COUNT DECREASED [None]
